FAERS Safety Report 6663628-4 (Version None)
Quarter: 2010Q1

REPORT INFORMATION
  Report Type: 
  Country: None (occurrence: None)
  Receive Date: 20100331
  Receipt Date: 20100331
  Transmission Date: 20100710
  Serious: Yes (Life-Threatening, Hospitalization)
  Sender: FDA-Public Use
  Company Number: None

PATIENT
  Age: 84 Year
  Sex: Female

DRUGS (11)
  1. PROPOFOL [Suspect]
     Indication: SEDATIVE THERAPY
     Dosage: ONCE IV
     Route: 042
     Dates: start: 20100121, end: 20100121
  2. PROPOFOL [Suspect]
     Indication: TOOTH EXTRACTION
     Dosage: ONCE IV
     Route: 042
     Dates: start: 20100121, end: 20100121
  3. CLOPIDOGREL [Concomitant]
  4. ALPRAZOLAM [Concomitant]
  5. ASPIRIN [Concomitant]
  6. LEVOTHYROXINE SODIUM [Concomitant]
  7. CINACALCET HYDROCHLORIDE [Concomitant]
  8. PREDNISONE TAB [Concomitant]
  9. SIMVASTATIN [Concomitant]
  10. NEPHROVITE [Concomitant]
  11. DOCUSATE SODIUM [Concomitant]

REACTIONS (4)
  - BRADYCARDIA [None]
  - CARDIAC ARREST [None]
  - HYPOTENSION [None]
  - UNRESPONSIVE TO STIMULI [None]
